FAERS Safety Report 16764297 (Version 2)
Quarter: 2019Q3

REPORT INFORMATION
  Report Type: Report from Study
  Country: CN (occurrence: CN)
  Receive Date: 20190902
  Receipt Date: 20190905
  Transmission Date: 20191005
  Serious: Yes (Other)
  Sender: FDA-Public Use
  Company Number: CN-ROCHE-2387154

PATIENT
  Age: 66 Year
  Sex: Male
  Weight: 59 kg

DRUGS (2)
  1. AVASTIN [Suspect]
     Active Substance: BEVACIZUMAB
     Route: 041
  2. AVASTIN [Suspect]
     Active Substance: BEVACIZUMAB
     Indication: RECTAL CANCER
     Route: 041
     Dates: start: 20170726, end: 20190708

REACTIONS (2)
  - Neoplasm progression [Not Recovered/Not Resolved]
  - Haematuria [Unknown]
